FAERS Safety Report 17552060 (Version 1)
Quarter: 2020Q1

REPORT INFORMATION
  Report Type: Spontaneous
  Country: RU (occurrence: RU)
  Receive Date: 20200317
  Receipt Date: 20200317
  Transmission Date: 20200409
  Serious: Yes (Other)
  Sender: FDA-Public Use
  Company Number: RU-ASTRAZENECA-2020SE34609

PATIENT
  Age: 52 Year
  Sex: Female

DRUGS (6)
  1. XARELTO [Concomitant]
     Active Substance: RIVAROXABAN
     Indication: EMBOLIC STROKE
     Dates: start: 20200206
  2. IRESSA [Suspect]
     Active Substance: GEFITINIB
     Indication: METASTASES TO LIVER
     Route: 048
     Dates: start: 20200117
  3. IRESSA [Suspect]
     Active Substance: GEFITINIB
     Indication: HUMAN EPIDERMAL GROWTH FACTOR RECEPTOR INCREASED
     Route: 048
     Dates: start: 20200117
  4. IRESSA [Suspect]
     Active Substance: GEFITINIB
     Indication: NON-SMALL CELL LUNG CANCER
     Route: 048
     Dates: start: 20200117
  5. IRESSA [Suspect]
     Active Substance: GEFITINIB
     Indication: METASTASES TO BONE
     Route: 048
     Dates: start: 20200117
  6. OMEZ [Concomitant]
     Active Substance: OMEPRAZOLE
     Dosage: 3 MONTHS AGO TILL PRESENT

REACTIONS (6)
  - Red blood cell sedimentation rate increased [Unknown]
  - Drug ineffective [Not Recovered/Not Resolved]
  - White blood cell count increased [Unknown]
  - Haemoglobin decreased [Unknown]
  - Rash pustular [Not Recovered/Not Resolved]
  - Diarrhoea [Not Recovered/Not Resolved]

NARRATIVE: CASE EVENT DATE: 20200216
